FAERS Safety Report 23795013 (Version 1)
Quarter: 2024Q2

REPORT INFORMATION
  Report Type: Spontaneous
  Country: US (occurrence: None)
  Receive Date: 20240426
  Receipt Date: 20240426
  Transmission Date: 20240715
  Serious: Yes (Other)
  Sender: FDA-Public Use
  Company Number: None

PATIENT
  Age: 25 Month
  Sex: Female
  Weight: 17.1 kg

DRUGS (2)
  1. AMOXICILLIN [Suspect]
     Active Substance: AMOXICILLIN
     Indication: Ear infection
     Dosage: FREQUENCY : TWICE A DAY;?
     Route: 048
     Dates: start: 20240304, end: 20240306
  2. DEXAMETHASONE [Suspect]
     Active Substance: DEXAMETHASONE

REACTIONS (10)
  - Rash [None]
  - Swelling face [None]
  - Abnormal behaviour [None]
  - Crying [None]
  - Screaming [None]
  - Fear [None]
  - Affect lability [None]
  - Sleep deficit [None]
  - Fatigue [None]
  - Conversion disorder [None]

NARRATIVE: CASE EVENT DATE: 20240304
